FAERS Safety Report 10446791 (Version 1)
Quarter: 2014Q3

REPORT INFORMATION
  Report Type: Spontaneous
  Country: US (occurrence: None)
  Receive Date: 20140909
  Receipt Date: 20140909
  Transmission Date: 20150326
  Serious: Yes (Hospitalization)
  Sender: FDA-Public Use
  Company Number: IMP_07890_2014

PATIENT
  Age: 13 Year
  Sex: Female
  Weight: 59 kg

DRUGS (8)
  1. DIPHENHYDRAMINE [Suspect]
     Active Substance: DIPHENHYDRAMINE
     Indication: PRODUCT USED FOR UNKNOWN INDICATION
     Dosage: (NOT PRESCRIBED AMOUNT)
  2. NAPROXEN. [Suspect]
     Active Substance: NAPROXEN
     Indication: PRODUCT USED FOR UNKNOWN INDICATION
     Dosage: (NOT PRESCRIBED AMOUNT)
  3. CITALOPRAM [Suspect]
     Active Substance: CITALOPRAM HYDROBROMIDE
     Indication: PRODUCT USED FOR UNKNOWN INDICATION
     Dosage: (NOT THE PRESCRIBED AMOUNT)
  4. DIPHENHYDRAMINE [Suspect]
     Active Substance: DIPHENHYDRAMINE
     Indication: PRODUCT USED FOR UNKNOWN INDICATION
     Dosage: (NOT THE PRESCRIBED AMOUNT)
  5. ACETAMINOPHEN. [Suspect]
     Active Substance: ACETAMINOPHEN
     Indication: PRODUCT USED FOR UNKNOWN INDICATION
     Dosage: (NOT THE PRESCRIBED AMOUNT)
  6. OMEPRAZOLE. [Suspect]
     Active Substance: OMEPRAZOLE
     Indication: PRODUCT USED FOR UNKNOWN INDICATION
     Dosage: (NOT PRESCRIBED AMOUNT)
  7. NAPROXEN. [Suspect]
     Active Substance: NAPROXEN
     Indication: PRODUCT USED FOR UNKNOWN INDICATION
     Dosage: (NOT THE PRESCRIBED AMOUNT)
  8. BUPROPION [Suspect]
     Active Substance: BUPROPION
     Indication: PRODUCT USED FOR UNKNOWN INDICATION
     Dosage: (NOT THE PRESCRIBED AMOUNT)

REACTIONS (21)
  - Disorientation [None]
  - Urinary retention [None]
  - Gastrointestinal sounds abnormal [None]
  - Overdose [None]
  - Suicide attempt [None]
  - Intentional overdose [None]
  - Hypertension [None]
  - Flushing [None]
  - Abnormal behaviour [None]
  - Muscle rigidity [None]
  - Mydriasis [None]
  - Tremor [None]
  - Hallucination [None]
  - Mucosal dryness [None]
  - Myoclonus [None]
  - Rhabdomyolysis [None]
  - Agitation [None]
  - Hyperthermia [None]
  - Sinus tachycardia [None]
  - Erythema [None]
  - Blood glucose increased [None]
